FAERS Safety Report 20895827 (Version 1)
Quarter: 2022Q2

REPORT INFORMATION
  Report Type: Spontaneous
  Country: US (occurrence: None)
  Receive Date: 20220529
  Receipt Date: 20220529
  Transmission Date: 20220721
  Serious: Yes (Other)
  Sender: FDA-Public Use
  Company Number: None

PATIENT
  Age: 2 Year
  Sex: Male
  Weight: 12.15 kg

DRUGS (4)
  1. OSELTAMIVIR PHOSPHATE [Suspect]
     Active Substance: OSELTAMIVIR PHOSPHATE
     Indication: Influenza virus test positive
     Dosage: OTHER QUANTITY : 5 ML;?FREQUENCY : TWICE A DAY;?
     Route: 048
     Dates: start: 20220527, end: 20220528
  2. AMOXICILLIN [Concomitant]
  3. TYLENOL [Concomitant]
     Active Substance: ACETAMINOPHEN
  4. MOTRIN [Concomitant]
     Active Substance: IBUPROFEN

REACTIONS (4)
  - Ataxia [None]
  - Abnormal behaviour [None]
  - Confusional state [None]
  - Cognitive disorder [None]

NARRATIVE: CASE EVENT DATE: 20220528
